FAERS Safety Report 9200749 (Version 1)
Quarter: 2013Q1

REPORT INFORMATION
  Report Type: Spontaneous
  Country: US (occurrence: None)
  Receive Date: 20130328
  Receipt Date: 20130328
  Transmission Date: 20140127
  Serious: Yes (Hospitalization)
  Sender: FDA-Public Use
  Company Number: None

PATIENT
  Age: 64 Year
  Sex: Male
  Weight: 108 kg

DRUGS (13)
  1. CARBAMAZEPINE 200 MG APOTEX [Suspect]
     Indication: TRIGEMINAL NEURALGIA
     Route: 048
  2. ALLOPURINOL [Concomitant]
  3. BACLOFEN [Concomitant]
  4. GABAPENTIN [Concomitant]
  5. INDAPAMIDE [Concomitant]
  6. SIMVASTATIN [Concomitant]
  7. VENLAFAXINE [Concomitant]
  8. WARFARIN [Concomitant]
  9. PANTOPRAZOLE [Concomitant]
  10. TADALAFIL [Concomitant]
  11. LACTULOSE [Concomitant]
  12. ACETAMINOPHEN [Concomitant]
  13. NATALIZUMAB [Concomitant]

REACTIONS (2)
  - Muscular weakness [None]
  - Multiple sclerosis relapse [None]
